FAERS Safety Report 21303256 (Version 1)
Quarter: 2022Q3

REPORT INFORMATION
  Report Type: Spontaneous
  Country: US (occurrence: None)
  Receive Date: 20220907
  Receipt Date: 20220907
  Transmission Date: 20221027
  Serious: Yes (Death)
  Sender: FDA-Public Use
  Company Number: None

PATIENT
  Age: 81 Year
  Sex: Female
  Weight: 61 kg

DRUGS (1)
  1. ZOLEDRONIC ACID [Suspect]
     Active Substance: ZOLEDRONIC ACID
     Dates: start: 20220819

REACTIONS (9)
  - Shock [None]
  - Respiratory failure [None]
  - Sepsis [None]
  - Hypervolaemia [None]
  - Fatigue [None]
  - Diarrhoea [None]
  - Nausea [None]
  - Continuous haemodiafiltration [None]
  - Dehydration [None]

NARRATIVE: CASE EVENT DATE: 20220821
